FAERS Safety Report 14166572 (Version 1)
Quarter: 2017Q4

REPORT INFORMATION
  Report Type: Spontaneous
  Country: AU (occurrence: AU)
  Receive Date: 20171107
  Receipt Date: 20171107
  Transmission Date: 20180321
  Serious: Yes (Hospitalization, Other)
  Sender: FDA-Public Use
  Company Number: AU-ALEMBIC PHARMACUETICALS LIMITED-2017SCAL000890

PATIENT

DRUGS (1)
  1. LITHIUM CARBONATE. [Suspect]
     Active Substance: LITHIUM CARBONATE
     Indication: BIPOLAR DISORDER
     Dosage: UNK

REACTIONS (8)
  - Nephrogenic diabetes insipidus [Recovering/Resolving]
  - Blood osmolarity increased [Unknown]
  - Polydipsia [Recovering/Resolving]
  - Polyuria [Recovering/Resolving]
  - Renal impairment [Recovering/Resolving]
  - Hypernatraemia [Recovering/Resolving]
  - Urine osmolarity decreased [Recovering/Resolving]
  - Dehydration [Recovering/Resolving]
